FAERS Safety Report 17855127 (Version 1)
Quarter: 2020Q2

REPORT INFORMATION
  Report Type: Spontaneous
  Country: RU (occurrence: RU)
  Receive Date: 20200603
  Receipt Date: 20200603
  Transmission Date: 20200714
  Serious: Yes (Other)
  Sender: FDA-Public Use
  Company Number: RU-ASTRAZENECA-2020SE69900

PATIENT
  Age: 21896 Day
  Sex: Female

DRUGS (6)
  1. IRESSA [Suspect]
     Active Substance: GEFITINIB
     Indication: NON-SMALL CELL LUNG CANCER STAGE IV
     Dosage: 250.0MG UNKNOWN
     Route: 048
     Dates: start: 202004, end: 20200525
  2. IRESSA [Suspect]
     Active Substance: GEFITINIB
     Indication: EGFR GENE MUTATION
     Dosage: 250.0MG UNKNOWN
     Route: 048
     Dates: start: 20190828
  3. IRESSA [Suspect]
     Active Substance: GEFITINIB
     Indication: NON-SMALL CELL LUNG CANCER STAGE IV
     Dosage: 250 MG, GENERIC GEFITINIB UNKNOWN
     Route: 048
     Dates: start: 202002, end: 202003
  4. IRESSA [Suspect]
     Active Substance: GEFITINIB
     Indication: EGFR GENE MUTATION
     Dosage: 250 MG, GENERIC GEFITINIB UNKNOWN
     Route: 048
     Dates: start: 202002, end: 202003
  5. IRESSA [Suspect]
     Active Substance: GEFITINIB
     Indication: EGFR GENE MUTATION
     Dosage: 250.0MG UNKNOWN
     Route: 048
     Dates: start: 202004, end: 20200525
  6. IRESSA [Suspect]
     Active Substance: GEFITINIB
     Indication: NON-SMALL CELL LUNG CANCER STAGE IV
     Dosage: 250.0MG UNKNOWN
     Route: 048
     Dates: start: 20190828

REACTIONS (1)
  - Encephalopathy [Unknown]

NARRATIVE: CASE EVENT DATE: 20200511
